FAERS Safety Report 4579233-X (Version None)
Quarter: 2005Q1

REPORT INFORMATION
  Report Type: 
  Country: None (occurrence: None)
  Receive Date: 20050208
  Receipt Date: 20050208
  Transmission Date: 20050727
  Serious: No
  Sender: FDA-Public Use
  Company Number: None

PATIENT
  Sex: Female

DRUGS (1)
  1. COUMADIN [Suspect]
     Indication: INTERNATIONAL NORMALISED RATIO INCREASED
     Dosage: 1 MG PO QD/SINCE 1990'S
     Route: 048
     Dates: start: 19900101

REACTIONS (2)
  - MALAISE [None]
  - PHARMACEUTICAL PRODUCT COMPLAINT [None]
